FAERS Safety Report 21934859 (Version 1)
Quarter: 2023Q1

REPORT INFORMATION
  Report Type: Spontaneous
  Country: US (occurrence: US)
  Receive Date: 20230201
  Receipt Date: 20230201
  Transmission Date: 20230418
  Serious: No
  Sender: FDA-Public Use
  Company Number: US-BRISTOL-MYERS SQUIBB COMPANY-2023-014598

PATIENT
  Age: 70 Year
  Sex: Female

DRUGS (1)
  1. POMALYST [Suspect]
     Active Substance: POMALIDOMIDE
     Indication: Plasma cell myeloma
     Dosage: FREQUENCY- EVERY OTHER DAY.
     Route: 048

REACTIONS (5)
  - Asthenia [Unknown]
  - Nausea [Unknown]
  - Abdominal discomfort [Unknown]
  - Arthralgia [Unknown]
  - Back pain [Unknown]
